FAERS Safety Report 10933238 (Version 5)
Quarter: 2015Q2

REPORT INFORMATION
  Report Type: Spontaneous
  Country: US (occurrence: US)
  Receive Date: 20150320
  Receipt Date: 20150422
  Transmission Date: 20150821
  Serious: No
  Sender: FDA-Public Use
  Company Number: US-UNITED THERAPEUTICS-UNT-2015-001559

PATIENT
  Age: 46 Year
  Sex: Female
  Weight: 135.15 kg

DRUGS (8)
  1. TYVASO [Suspect]
     Active Substance: TREPROSTINIL
     Indication: PULMONARY HYPERTENSION
     Dosage: 18-54 ?G, QID
     Dates: start: 20150202
  2. TYVASO [Suspect]
     Active Substance: TREPROSTINIL
     Dosage: 54 ?G, UNK
     Dates: start: 20150218
  3. TYVASO [Suspect]
     Active Substance: TREPROSTINIL
     Dosage: 18-54 ?G, QID
     Dates: start: 20150202
  4. TYVASO [Suspect]
     Active Substance: TREPROSTINIL
     Dosage: 18-54 ?G, TID
  5. TYVASO [Suspect]
     Active Substance: TREPROSTINIL
     Dosage: 36 ?G, UNK
     Dates: start: 20150212
  6. TYVASO [Suspect]
     Active Substance: TREPROSTINIL
     Dosage: UNK
  7. TYVASO [Suspect]
     Active Substance: TREPROSTINIL
     Dosage: 18 ?G, UNK
     Dates: start: 20150205
  8. REVATIO [Concomitant]
     Active Substance: SILDENAFIL CITRATE
     Indication: PRODUCT USED FOR UNKNOWN INDICATION

REACTIONS (17)
  - Systemic lupus erythematosus [Recovered/Resolved]
  - Oedema peripheral [Not Recovered/Not Resolved]
  - Oropharyngeal pain [Recovered/Resolved]
  - Cough [Not Recovered/Not Resolved]
  - Nasopharyngitis [Unknown]
  - Fatigue [Not Recovered/Not Resolved]
  - Nasal congestion [Not Recovered/Not Resolved]
  - Dyspnoea [Recovered/Resolved]
  - Hypoaesthesia [Unknown]
  - Throat irritation [Not Recovered/Not Resolved]
  - Wheezing [Unknown]
  - Chest discomfort [Recovered/Resolved]
  - Rhinorrhoea [Recovered/Resolved]
  - Headache [Not Recovered/Not Resolved]
  - Flushing [Not Recovered/Not Resolved]
  - Weight decreased [Not Recovered/Not Resolved]
  - Bronchitis [Unknown]

NARRATIVE: CASE EVENT DATE: 201502
